FAERS Safety Report 8812701 (Version 3)
Quarter: 2014Q2

REPORT INFORMATION
  Report Type: Report from Study
  Country: US (occurrence: US)
  Receive Date: 20120927
  Receipt Date: 20140414
  Transmission Date: 20141212
  Serious: Yes (Death)
  Sender: FDA-Public Use
  Company Number: US-BAXTER-2012BAX017945

PATIENT
  Age: 51 Year
  Sex: Male

DRUGS (3)
  1. GAMMAGARD LIQUID [Suspect]
     Indication: NEUROMYOPATHY
     Route: 065
  2. BENADRYL [Concomitant]
     Indication: PREMEDICATION
     Route: 065
  3. TYLENOL [Concomitant]
     Indication: PREMEDICATION
     Route: 065

REACTIONS (1)
  - Death [Fatal]
